FAERS Safety Report 6956341-7 (Version None)
Quarter: 2010Q3

REPORT INFORMATION
  Report Type: 
  Country: None (occurrence: None)
  Receive Date: 20100830
  Receipt Date: 20100824
  Transmission Date: 20110219
  Serious: Yes (Other)
  Sender: FDA-Public Use
  Company Number: A0856535A

PATIENT
  Age: 48 Year
  Sex: Female
  Weight: 60 kg

DRUGS (1)
  1. WELLBUTRIN [Suspect]
     Indication: DEPRESSION
     Route: 048
     Dates: start: 20100118, end: 20100301

REACTIONS (9)
  - ANXIETY [None]
  - DIZZINESS [None]
  - DYSPHONIA [None]
  - FEELING JITTERY [None]
  - GASTROENTERITIS VIRAL [None]
  - INSOMNIA [None]
  - NERVOUSNESS [None]
  - TREMOR [None]
  - WITHDRAWAL SYNDROME [None]
